FAERS Safety Report 22372988 (Version 7)
Quarter: 2024Q1

REPORT INFORMATION
  Report Type: Report from Study
  Country: GB (occurrence: GB)
  Receive Date: 20230526
  Receipt Date: 20240215
  Transmission Date: 20240410
  Serious: Yes (Other)
  Sender: FDA-Public Use
  Company Number: GB-AMGEN-GBRNI2023043828

PATIENT
  Age: 64 Year
  Sex: Male
  Weight: 82.6 kg

DRUGS (17)
  1. BEVACIZUMAB [Suspect]
     Active Substance: BEVACIZUMAB
     Indication: Hepatocellular carcinoma
     Dosage: 1200 MILLIGRAM
     Route: 065
     Dates: start: 20230111
  2. ATEZOLIZUMAB [Suspect]
     Active Substance: ATEZOLIZUMAB
     Indication: Hepatocellular carcinoma
     Dosage: 1200 MILLIGRAM, INTRAVENOUS DRIP
     Route: 041
     Dates: start: 20230111
  3. BUDESONIDE [Concomitant]
     Active Substance: BUDESONIDE
     Dosage: UNK
     Route: 065
     Dates: start: 1993
  4. FORMOTEROL [Concomitant]
     Active Substance: FORMOTEROL
     Dosage: UNK, BID
     Route: 065
     Dates: start: 1993
  5. CANDESARTAN [Concomitant]
     Active Substance: CANDESARTAN
     Dosage: UNK, QD
     Route: 065
     Dates: start: 20230118, end: 20230617
  6. CANDESARTAN [Concomitant]
     Active Substance: CANDESARTAN
     Dosage: UNK
     Route: 065
     Dates: start: 20230705
  7. CANDESARTAN [Concomitant]
     Active Substance: CANDESARTAN
     Dosage: UNK
     Dates: start: 20230214
  8. CARVEDILOL [Concomitant]
     Active Substance: CARVEDILOL
     Dosage: 6.25 MILLIGRAM, BID
     Dates: start: 20211124, end: 20230617
  9. CODEINE PHOSPHATE [Concomitant]
     Active Substance: CODEINE PHOSPHATE
     Dosage: UNK
     Route: 065
     Dates: start: 202106
  10. OMEPRAZOLE [Concomitant]
     Active Substance: OMEPRAZOLE
     Dosage: UNK, QD
     Route: 065
     Dates: start: 202204
  11. ACETAMINOPHEN [Concomitant]
     Active Substance: ACETAMINOPHEN
     Dosage: UNK
     Route: 065
     Dates: start: 202106
  12. ALBUTEROL [Concomitant]
     Active Substance: ALBUTEROL
     Dosage: 100 MICROGRAM
     Route: 065
     Dates: start: 1979
  13. NITROFURANTOIN [Concomitant]
     Active Substance: NITROFURANTOIN
     Dosage: 50 MILLIGRAM, QD
     Route: 065
     Dates: start: 20230808
  14. Renapro [Concomitant]
  15. WHEY [Concomitant]
     Active Substance: WHEY
     Dosage: 60 MILLIGRAM, QD
     Dates: start: 202211
  16. MAGNESIUM CHLORIDE [Concomitant]
     Active Substance: MAGNESIUM CHLORIDE
     Dosage: 60 MILLIGRAM, QD
     Dates: start: 202211
  17. CALCIUM CARBONATE [Concomitant]
     Active Substance: CALCIUM CARBONATE
     Dosage: 60 MILLIGRAM, QD
     Dates: start: 202211

REACTIONS (6)
  - Adrenal insufficiency [Not Recovered/Not Resolved]
  - Gingival bleeding [Recovered/Resolved]
  - Hypertension [Not Recovered/Not Resolved]
  - Oropharyngeal pain [Recovered/Resolved]
  - Acne [Not Recovered/Not Resolved]
  - Anxiety [Not Recovered/Not Resolved]

NARRATIVE: CASE EVENT DATE: 20230130
